FAERS Safety Report 4371793-7 (Version None)
Quarter: 2004Q2

REPORT INFORMATION
  Report Type: 
  Country: None (occurrence: None)
  Receive Date: 20040601
  Receipt Date: 20040518
  Transmission Date: 20050107
  Serious: Yes (Death)
  Sender: FDA-Public Use
  Company Number: S04-USA-02803-01

PATIENT

DRUGS (2)
  1. NAMENDA [Suspect]
     Dosage: 10 MG BID PO
     Route: 048
  2. NAMENDA [Suspect]

REACTIONS (1)
  - MYOCARDIAL INFARCTION [None]
